FAERS Safety Report 7305442-2 (Version None)
Quarter: 2011Q1

REPORT INFORMATION
  Report Type: 
  Country: None (occurrence: None)
  Receive Date: 20110222
  Receipt Date: 20110209
  Transmission Date: 20110831
  Serious: Yes (Hospitalization)
  Sender: FDA-Public Use
  Company Number: PHHY2011FR11041

PATIENT
  Sex: Female

DRUGS (11)
  1. ZOPICLONE [Concomitant]
     Dosage: UNK
  2. SIMVASTATIN [Concomitant]
     Dosage: UNK
  3. ASPIRIN [Concomitant]
     Dosage: UNK
  4. MIRCERA [Concomitant]
     Dosage: UNK
  5. INIPOMP [Concomitant]
     Dosage: UNK
  6. MOVICOL [Concomitant]
     Dosage: UNK
  7. ATARAX [Concomitant]
     Dosage: UNK
  8. EXELON [Suspect]
     Dosage: 1.5 MG, QD
     Route: 048
     Dates: start: 20110119, end: 20110121
  9. MAGNE B6 [Concomitant]
     Dosage: UNK
  10. ACETAMINOPHEN [Concomitant]
     Dosage: UNK
  11. TARDYFERON [Concomitant]
     Dosage: UNK

REACTIONS (5)
  - STATUS EPILEPTICUS [None]
  - MALAISE [None]
  - EYE MOVEMENT DISORDER [None]
  - POSTURE ABNORMAL [None]
  - CONVULSION [None]
